FAERS Safety Report 20735043 (Version 2)
Quarter: 2022Q4

REPORT INFORMATION
  Report Type: Report from Study
  Country: US (occurrence: US)
  Receive Date: 20220421
  Receipt Date: 20221108
  Transmission Date: 20230112
  Serious: Yes (Hospitalization, Other)
  Sender: FDA-Public Use
  Company Number: US-RECORDATI-2021003499

PATIENT

DRUGS (17)
  1. ISTURISA [Suspect]
     Active Substance: OSILODROSTAT PHOSPHATE
     Indication: Pituitary-dependent Cushing^s syndrome
     Dosage: 2 MILLIGRAM, BID
     Route: 048
     Dates: start: 20210427, end: 20210821
  2. ISTURISA [Suspect]
     Active Substance: OSILODROSTAT PHOSPHATE
     Indication: Cushing^s syndrome
     Dosage: 2 MILLIGRAM, BID (ISTURISA 1 MG TABLET)
     Route: 048
     Dates: start: 20210427
  3. ISTURISA [Suspect]
     Active Substance: OSILODROSTAT PHOSPHATE
     Dosage: 8 MILLIGRAM, BID
     Route: 048
     Dates: start: 2021
  4. ISTURISA [Suspect]
     Active Substance: OSILODROSTAT PHOSPHATE
     Dosage: UNK
     Route: 048
  5. ISTURISA [Suspect]
     Active Substance: OSILODROSTAT PHOSPHATE
     Dosage: 5 MILLIGRAM, BID
     Route: 048
     Dates: start: 202207
  6. GABAPENTIN [Concomitant]
     Active Substance: GABAPENTIN
     Indication: Neuropathy peripheral
     Dosage: 600 MILLIGRAM, QD
     Route: 048
     Dates: start: 20200512
  7. CALCIUM\VITAMIN D [Concomitant]
     Active Substance: CALCIUM\VITAMIN D
     Indication: Hypovitaminosis
     Dosage: 500/200MG TWICE DAILY
     Dates: start: 20200512
  8. FERROUS SULFATE [Concomitant]
     Active Substance: FERROUS SULFATE
     Indication: Hypovitaminosis
     Dosage: 325 MILLIGRAM, QD
     Dates: start: 20200512
  9. LEVOTHYROXINE SODIUM [Concomitant]
     Active Substance: LEVOTHYROXINE SODIUM
     Indication: Hypothyroidism
     Dosage: 125 MICROGRAM, QD, EVERY MORNING
     Route: 048
     Dates: start: 20200512
  10. PANTOPRAZOLE SODIUM [Concomitant]
     Active Substance: PANTOPRAZOLE SODIUM
     Indication: Gastrooesophageal reflux disease
     Dosage: 40 MILLIGRAM, ONCE IN THE MORNING
     Dates: start: 20200512
  11. PROLIA [Concomitant]
     Active Substance: DENOSUMAB
     Indication: Osteoporosis
     Dosage: UNK, QM
     Route: 058
     Dates: start: 20200512
  12. PROLIA [Concomitant]
     Active Substance: DENOSUMAB
     Dosage: 60 MILLIGRAM, ONCE A MONTH
     Route: 058
  13. SERTRALINE [Concomitant]
     Active Substance: SERTRALINE HYDROCHLORIDE
     Indication: Depression
     Dosage: 200 MILLIGRAM, QD
     Route: 048
     Dates: start: 20200512
  14. WELLBUTRIN XL [Concomitant]
     Active Substance: BUPROPION HYDROCHLORIDE
     Indication: Depression
     Dosage: 300 MILLIGRAM, QD
     Dates: start: 20200512
  15. VITAMIN D NOS [Concomitant]
     Active Substance: VITAMIN D NOS
     Indication: Hypovitaminosis
     Dosage: 125 MICROGRAM, QD
  16. CYANOCOBALAMIN [Concomitant]
     Active Substance: CYANOCOBALAMIN
     Indication: Hypovitaminosis
     Dosage: 1000 MICROGRAM/ ML 1 ML PER MONTH
     Dates: start: 20200512
  17. FUROSEMIDE [Concomitant]
     Active Substance: FUROSEMIDE
     Indication: Fluid retention
     Dosage: 20 MILLIGRAM, QD
     Dates: start: 20200512

REACTIONS (3)
  - Cellulitis [Recovered/Resolved]
  - Peripheral swelling [Not Recovered/Not Resolved]
  - Lymphoedema [Recovered/Resolved]

NARRATIVE: CASE EVENT DATE: 20210801
